FAERS Safety Report 8938498 (Version 1)
Quarter: 2012Q4

REPORT INFORMATION
  Report Type: 
  Country: CN (occurrence: CN)
  Receive Date: 20121130
  Receipt Date: 20121130
  Transmission Date: 20130627
  Serious: Yes (Other)
  Sender: FDA-Public Use
  Company Number: PHHY2012CN107171

PATIENT
  Age: 47 Year
  Sex: Female
  Weight: 70 kg

DRUGS (1)
  1. TEGRETOL [Suspect]
     Indication: OCCIPITAL NEURALGIA
     Dosage: 0.5 DF, BID, 0.5 tablets twice a day
     Route: 048
     Dates: start: 20090616, end: 20090710

REACTIONS (2)
  - Ageusia [Recovering/Resolving]
  - Dysgeusia [Not Recovered/Not Resolved]
